FAERS Safety Report 21963040 (Version 2)
Quarter: 2023Q1

REPORT INFORMATION
  Report Type: Spontaneous
  Country: US (occurrence: US)
  Receive Date: 20230207
  Receipt Date: 20230209
  Transmission Date: 20230418
  Serious: No
  Sender: FDA-Public Use
  Company Number: US-002147023-NVSC2023US027431

PATIENT
  Sex: Male

DRUGS (1)
  1. VOTRIENT [Suspect]
     Active Substance: PAZOPANIB HYDROCHLORIDE
     Indication: Illness
     Dosage: 800 MG, QD
     Route: 048
     Dates: start: 20230130, end: 20230131

REACTIONS (2)
  - Venous valve ruptured [Unknown]
  - Product use in unapproved indication [Unknown]
